FAERS Safety Report 8141121-X (Version None)
Quarter: 2012Q1

REPORT INFORMATION
  Report Type: 
  Country: None (occurrence: None)
  Receive Date: 20120216
  Receipt Date: 20120210
  Transmission Date: 20120608
  Serious: Yes (Hospitalization)
  Sender: FDA-Public Use
  Company Number: US-BAYER-2011-030577

PATIENT
  Age: 30 Year
  Sex: Female
  Weight: 74.83 kg

DRUGS (12)
  1. VICODIN [Concomitant]
     Indication: MIGRAINE
     Dosage: UNK UNK, PRN
     Route: 048
  2. ACETAMINOPHEN [Concomitant]
     Indication: MIGRAINE
  3. LYRICA [Concomitant]
     Dosage: 75 MG EACH MORNING, 150 MG EACH EVENING
     Route: 048
  4. DICYCLOMINE [Concomitant]
     Dosage: UNK
     Dates: start: 20080101, end: 20100101
  5. PRILOSEC [Concomitant]
     Indication: GASTROOESOPHAGEAL REFLUX DISEASE
     Dosage: UNK
     Dates: start: 20090101
  6. MECLIZINE [Concomitant]
     Dosage: 25 MG, UNK
     Route: 048
  7. YAZ [Suspect]
     Indication: CONTRACEPTION
     Dosage: UNK
     Dates: start: 20080911, end: 20090101
  8. MOTRIN [Concomitant]
     Indication: MIGRAINE
  9. ZANTAC [Concomitant]
     Indication: GASTROOESOPHAGEAL REFLUX DISEASE
     Dosage: 150 MG, BID
     Route: 048
     Dates: start: 20050101
  10. RANITIDINE [Concomitant]
     Indication: IRRITABLE BOWEL SYNDROME
     Dosage: UNK
     Dates: start: 20050101
  11. AXERT [Concomitant]
     Indication: MIGRAINE
     Dosage: 12.5 MG, UNK
     Route: 048
  12. BENTYL [Concomitant]
     Dosage: 10 MG, UNK
     Route: 048

REACTIONS (7)
  - PAIN [None]
  - INJURY [None]
  - MIGRAINE [None]
  - TRANSIENT ISCHAEMIC ATTACK [None]
  - ANHEDONIA [None]
  - MAJOR DEPRESSION [None]
  - ANXIETY [None]
